FAERS Safety Report 25230356 (Version 1)
Quarter: 2025Q2

REPORT INFORMATION
  Report Type: Spontaneous
  Country: US (occurrence: US)
  Receive Date: 20250423
  Receipt Date: 20250423
  Transmission Date: 20250716
  Serious: Yes (Hospitalization)
  Sender: MYLAN
  Company Number: US-MYLANLABS-2025M1034430

PATIENT
  Age: 72 Year
  Sex: Male

DRUGS (5)
  1. MYCOPHENOLATE MOFETIL [Interacting]
     Active Substance: MYCOPHENOLATE MOFETIL
     Indication: Prophylaxis against transplant rejection
  2. MYCOPHENOLATE MOFETIL [Interacting]
     Active Substance: MYCOPHENOLATE MOFETIL
  3. CYCLOSPORINE [Interacting]
     Active Substance: CYCLOSPORINE
     Indication: Prophylaxis against transplant rejection
  4. PREDNISONE [Interacting]
     Active Substance: PREDNISONE
     Indication: Prophylaxis against transplant rejection
  5. PREDNISONE [Interacting]
     Active Substance: PREDNISONE

REACTIONS (2)
  - Drug interaction [Recovered/Resolved]
  - Colitis [Recovered/Resolved]
